FAERS Safety Report 10202644 (Version 1)
Quarter: 2014Q2

REPORT INFORMATION
  Report Type: Spontaneous
  Country: US (occurrence: US)
  Receive Date: 20140528
  Receipt Date: 20140528
  Transmission Date: 20141212
  Serious: No
  Sender: FDA-Public Use
  Company Number: US-009507513-1405USA014127

PATIENT
  Sex: Male

DRUGS (2)
  1. JANUMET [Suspect]
     Indication: DIABETES MELLITUS
     Dosage: 50/1000 MG, BID
     Route: 048
  2. INSULIN [Concomitant]
     Dosage: UNK, UNKNOWN

REACTIONS (1)
  - Diarrhoea [Unknown]
